FAERS Safety Report 13213594 (Version 1)
Quarter: 2017Q1

REPORT INFORMATION
  Report Type: Spontaneous
  Country: US (occurrence: US)
  Receive Date: 20170209
  Receipt Date: 20170209
  Transmission Date: 20170428
  Serious: No
  Sender: FDA-Public Use
  Company Number: US-ALLERGAN-1664906US

PATIENT
  Sex: Female
  Weight: 65.76 kg

DRUGS (6)
  1. BENICAR [Concomitant]
     Active Substance: OLMESARTAN MEDOXOMIL
     Indication: HYPERTENSION
     Dosage: 40 MG, QD
     Route: 048
  2. TRAMADOL. [Concomitant]
     Active Substance: TRAMADOL
     Indication: PAIN
     Dosage: 50 MG, BID
     Route: 048
  3. TIZANIDINE. [Concomitant]
     Active Substance: TIZANIDINE
     Indication: FEELING OF RELAXATION
     Dosage: UNK UNK, QHS
     Route: 048
  4. BOTOX [Suspect]
     Active Substance: ONABOTULINUMTOXINA
     Indication: TORTICOLLIS
     Dosage: 400 UNITS, SINGLE
     Route: 030
     Dates: start: 20151221, end: 20151221
  5. CLONAZEPAM. [Concomitant]
     Active Substance: CLONAZEPAM
     Indication: ANXIETY
     Dosage: 1 MG, BID
     Route: 048
  6. AMLODIPINE [Concomitant]
     Active Substance: AMLODIPINE BESYLATE
     Indication: HYPERTENSION
     Dosage: 5 MG, QD
     Route: 048

REACTIONS (10)
  - Thirst [Not Recovered/Not Resolved]
  - Off label use [Unknown]
  - Lip dry [Not Recovered/Not Resolved]
  - Eye irritation [Not Recovered/Not Resolved]
  - Cough [Not Recovered/Not Resolved]
  - Sneezing [Not Recovered/Not Resolved]
  - Rhinorrhoea [Not Recovered/Not Resolved]
  - Dry mouth [Not Recovered/Not Resolved]
  - Lip swelling [Not Recovered/Not Resolved]
  - Swelling face [Not Recovered/Not Resolved]
